FAERS Safety Report 20873358 (Version 2)
Quarter: 2022Q2

REPORT INFORMATION
  Report Type: Other
  Country: KR (occurrence: KR)
  Receive Date: 20220525
  Receipt Date: 20220603
  Transmission Date: 20220721
  Serious: Yes (Hospitalization)
  Sender: FDA-Public Use
  Company Number: KR-TOLMAR, INC.-22KR033893

PATIENT
  Age: 79 Year
  Sex: Male
  Weight: 60 kg

DRUGS (7)
  1. ELIGARD [Suspect]
     Active Substance: LEUPROLIDE ACETATE
     Indication: Prostate cancer
     Dosage: 22.5 MILLIGRAM, QD
     Route: 058
     Dates: start: 20170303
  2. ENZALUTAMIDE [Suspect]
     Active Substance: ENZALUTAMIDE
     Indication: Prostate cancer
     Dosage: UNK, QID
     Route: 048
     Dates: start: 20170303
  3. SOLIFENACIN SUCCINATE [Concomitant]
     Active Substance: SOLIFENACIN SUCCINATE
     Indication: Bladder dysfunction
     Dosage: UNK
     Dates: start: 20170817
  4. TAMSULOSIN [Concomitant]
     Active Substance: TAMSULOSIN
     Indication: Bladder dysfunction
     Dosage: UNK
     Dates: start: 20171123
  5. MIRABEGRON [Concomitant]
     Active Substance: MIRABEGRON
     Indication: Bladder dysfunction
     Dosage: UNK
     Dates: start: 20171123
  6. OXYBUTYNIN CHLORIDE [Concomitant]
     Active Substance: OXYBUTYNIN CHLORIDE
     Indication: Bladder dysfunction
     Dosage: UNK
     Dates: start: 20180719
  7. ENTEKHAN [Concomitant]
     Indication: Aspartate aminotransferase increased
     Dosage: UNK
     Dates: start: 20210715

REACTIONS (1)
  - Spinal compression fracture [Recovered/Resolved]

NARRATIVE: CASE EVENT DATE: 20220301
